FAERS Safety Report 18846104 (Version 1)
Quarter: 2021Q1

REPORT INFORMATION
  Report Type: Report from Study
  Country: US (occurrence: US)
  Receive Date: 20210203
  Receipt Date: 20210203
  Transmission Date: 20210419
  Serious: Yes (Other)
  Sender: FDA-Public Use
  Company Number: US-EXELIXIS-CABO-20031944

PATIENT
  Sex: Male
  Weight: 83.9 kg

DRUGS (9)
  1. PREDNISONE. [Concomitant]
     Active Substance: PREDNISONE
  2. NIACIN. [Concomitant]
     Active Substance: NIACIN
  3. CABOMETYX [Suspect]
     Active Substance: CABOZANTINIB S-MALATE
     Indication: RENAL CELL CARCINOMA STAGE IV
     Dosage: 60 MG, QD
     Route: 048
     Dates: start: 202006, end: 20200813
  4. ATORVASTATIN [Concomitant]
     Active Substance: ATORVASTATIN
  5. ASPIRIN EC [Concomitant]
     Active Substance: ASPIRIN
  6. CABOMETYX [Suspect]
     Active Substance: CABOZANTINIB S-MALATE
     Indication: LUNG NEOPLASM MALIGNANT
     Dosage: 40 MG, QD
     Dates: start: 20201001
  7. ZOCOR [Concomitant]
     Active Substance: SIMVASTATIN
  8. FOLIC ACID. [Concomitant]
     Active Substance: FOLIC ACID
  9. PANTOPRAZOLE [Concomitant]
     Active Substance: PANTOPRAZOLE
     Dosage: UNK

REACTIONS (12)
  - Diarrhoea [Unknown]
  - Pancreatic neoplasm [Recovered/Resolved]
  - Headache [Unknown]
  - Pancreatitis [Unknown]
  - Abdominal pain upper [Unknown]
  - Asthenia [Unknown]
  - Visual impairment [Unknown]
  - Weight decreased [Unknown]
  - Rash [Unknown]
  - Hypertension [Recovering/Resolving]
  - Oropharyngeal pain [Unknown]
  - Stomatitis [Unknown]
